FAERS Safety Report 18928312 (Version 1)
Quarter: 2021Q1

REPORT INFORMATION
  Report Type: Spontaneous
  Country: NL (occurrence: LU)
  Receive Date: 20210223
  Receipt Date: 20210223
  Transmission Date: 20210420
  Serious: Yes (Death)
  Sender: FDA-Public Use
  Company Number: LU-FRESENIUS KABI-FK202101580

PATIENT
  Age: 20 Year
  Sex: Female
  Weight: 62.5 kg

DRUGS (25)
  1. PROPOFOL 2% (MANUFACTURER UNKNOWN) [Suspect]
     Active Substance: PROPOFOL
     Dosage: 200 MG/H
     Route: 041
     Dates: start: 20210118, end: 20210119
  2. PROPOFOL 2% (MANUFACTURER UNKNOWN) [Suspect]
     Active Substance: PROPOFOL
     Dosage: 220 MG/H
     Route: 040
     Dates: start: 20210122, end: 20210122
  3. SODIUM CHLORIDE. [Concomitant]
     Active Substance: SODIUM CHLORIDE
     Route: 042
     Dates: start: 20210119, end: 20210119
  4. ESKETAMINE HYDROCHLORIDE [Concomitant]
     Active Substance: ESKETAMINE HYDROCHLORIDE
     Indication: ANALGESIC THERAPY
     Route: 041
     Dates: start: 20210120, end: 20210123
  5. ESKETAMINE HYDROCHLORIDE [Concomitant]
     Active Substance: ESKETAMINE HYDROCHLORIDE
     Indication: SEDATIVE THERAPY
  6. THIOPENTAL [Concomitant]
     Active Substance: THIOPENTAL
     Indication: SEDATIVE THERAPY
     Dosage: + BOLI
     Route: 041
     Dates: start: 20210122, end: 20210123
  7. SUFENTANIL [Concomitant]
     Active Substance: SUFENTANIL
     Indication: SEDATIVE THERAPY
     Route: 041
     Dates: start: 20210118, end: 20210119
  8. MIDAZOLAM. [Concomitant]
     Active Substance: MIDAZOLAM
     Indication: SEDATIVE THERAPY
     Route: 041
     Dates: start: 20210121, end: 20210123
  9. PROPOFOL 2% (MANUFACTURER UNKNOWN) [Suspect]
     Active Substance: PROPOFOL
     Dosage: 240 MG/H
     Route: 041
     Dates: start: 20210119, end: 20210119
  10. PROPOFOL 2% (MANUFACTURER UNKNOWN) [Suspect]
     Active Substance: PROPOFOL
     Dosage: 200 MG/H
     Route: 041
     Dates: start: 20210119, end: 20210120
  11. PROPOFOL 2% (MANUFACTURER UNKNOWN) [Suspect]
     Active Substance: PROPOFOL
     Indication: SEDATIVE THERAPY
     Dosage: 260 MG/H
     Route: 041
     Dates: start: 20210122, end: 20210122
  12. MANNITOL. [Concomitant]
     Active Substance: MANNITOL
     Dosage: 3 BOLI (100 ML) : 00H29, 8H29, 12H45
     Route: 040
     Dates: start: 20210122, end: 20210122
  13. ACETYLCYSTEINE. [Concomitant]
     Active Substance: ACETYLCYSTEINE
     Route: 042
     Dates: start: 20210119, end: 20210123
  14. SUFENTANIL [Concomitant]
     Active Substance: SUFENTANIL
     Route: 041
     Dates: start: 20210122, end: 20210123
  15. MIDAZOLAM. [Concomitant]
     Active Substance: MIDAZOLAM
     Route: 041
     Dates: start: 20210119, end: 20210121
  16. MANNITOL. [Concomitant]
     Active Substance: MANNITOL
     Dosage: 2 BOLI (200 ML) : 00H30, 17H38
     Route: 040
     Dates: start: 20210120, end: 20210120
  17. SODIUM CHLORIDE. [Concomitant]
     Active Substance: SODIUM CHLORIDE
     Route: 042
     Dates: start: 20210121, end: 20210121
  18. ROCURONIUM BROMIDE. [Concomitant]
     Active Substance: ROCURONIUM BROMIDE
     Route: 040
     Dates: start: 20210119
  19. MANNITOL. [Concomitant]
     Active Substance: MANNITOL
     Dosage: 2 BOLI (100 ML) : 09H41, 16H00
     Route: 040
     Dates: start: 20210121, end: 20210121
  20. MANNITOL. [Concomitant]
     Active Substance: MANNITOL
     Dosage: 3 BOLI (200 ML) : 12H58, 14H30, 21H17
     Route: 040
     Dates: start: 20210119, end: 20210119
  21. PROPOFOL 2% (MANUFACTURER UNKNOWN) [Suspect]
     Active Substance: PROPOFOL
     Route: 040
     Dates: start: 20210119
  22. PROPOFOL 2% (MANUFACTURER UNKNOWN) [Suspect]
     Active Substance: PROPOFOL
     Dosage: 300 MG/H
     Route: 041
     Dates: start: 20210120, end: 20210122
  23. SUFENTANIL [Concomitant]
     Active Substance: SUFENTANIL
     Indication: ANALGESIC THERAPY
     Route: 041
     Dates: start: 20210119, end: 20210122
  24. MIDAZOLAM. [Concomitant]
     Active Substance: MIDAZOLAM
     Route: 041
     Dates: start: 20210121, end: 20210121
  25. NOREPINEPHRINE BITARTRATE. [Concomitant]
     Active Substance: NOREPINEPHRINE BITARTRATE
     Indication: HAEMODYNAMIC INSTABILITY
     Dosage: INITIALLY 0.03 UG/KG/MIN, INCREASING DOSAGES UP TO 0.16 UG/KG/MIN ON 2021/01/22 01:00, THEN 0.23 UG/
     Route: 041
     Dates: start: 20210118, end: 20210123

REACTIONS (2)
  - Propofol infusion syndrome [Fatal]
  - Lung disorder [Fatal]

NARRATIVE: CASE EVENT DATE: 20210123
